FAERS Safety Report 9149963 (Version 1)
Quarter: 2013Q1

REPORT INFORMATION
  Report Type: Spontaneous
  Country: US (occurrence: US)
  Receive Date: 20130308
  Receipt Date: 20130308
  Transmission Date: 20140127
  Serious: No
  Sender: FDA-Public Use
  Company Number: US-ENDO PHARMACEUTICALS INC.-OPCR20120672

PATIENT
  Age: 54 None
  Sex: Male

DRUGS (4)
  1. OPANA ER 30MG [Suspect]
     Indication: PAIN
     Route: 048
     Dates: start: 20120429, end: 2012
  2. OPANA ER 30MG [Suspect]
     Indication: NEUROPATHY PERIPHERAL
  3. OPANA ER 30MG [Concomitant]
     Indication: PAIN
     Route: 048
     Dates: end: 20120428
  4. OPANA ER 30MG [Concomitant]
     Indication: NEUROPATHY PERIPHERAL

REACTIONS (9)
  - Foreign body [Recovered/Resolved]
  - Malaise [Unknown]
  - Abdominal discomfort [Unknown]
  - Nausea [Unknown]
  - Dyspepsia [Unknown]
  - Abdominal pain upper [Unknown]
  - Abdominal distension [Unknown]
  - Withdrawal syndrome [Unknown]
  - Drug ineffective [Recovered/Resolved]
